FAERS Safety Report 17255643 (Version 11)
Quarter: 2020Q3

REPORT INFORMATION
  Report Type: Other
  Country: KR (occurrence: KR)
  Receive Date: 20200110
  Receipt Date: 20200928
  Transmission Date: 20201102
  Serious: Yes (Hospitalization)
  Sender: FDA-Public Use
  Company Number: KR-ROCHE-2507882

PATIENT
  Age: 72 Year
  Sex: Male
  Weight: 59.2 kg

DRUGS (28)
  1. ATEZOLIZUMAB. [Suspect]
     Active Substance: ATEZOLIZUMAB
     Route: 041
     Dates: start: 20200311
  2. ATEZOLIZUMAB. [Suspect]
     Active Substance: ATEZOLIZUMAB
     Route: 041
     Dates: start: 20200331
  3. ATEZOLIZUMAB. [Suspect]
     Active Substance: ATEZOLIZUMAB
     Route: 041
     Dates: start: 20200422
  4. ETOPOSIDE. [Suspect]
     Active Substance: ETOPOSIDE
     Route: 042
     Dates: start: 20200129
  5. ETOPOSIDE. [Suspect]
     Active Substance: ETOPOSIDE
     Dosage: ON 19/FEB/2020, PATIENT RECEIVED NEXT 150 MG DOSE OF ETOPOSIDE. ON 20/FEB/2020, PATIENT RECEIVED MOS
     Route: 042
     Dates: start: 20200218
  6. ETOPOSIDE. [Suspect]
     Active Substance: ETOPOSIDE
     Route: 042
     Dates: start: 20200130
  7. ETOPOSIDE. [Suspect]
     Active Substance: ETOPOSIDE
     Route: 042
     Dates: start: 20200111
  8. ETOPOSIDE. [Suspect]
     Active Substance: ETOPOSIDE
     Route: 042
     Dates: start: 20200219
  9. ATEZOLIZUMAB. [Suspect]
     Active Substance: ATEZOLIZUMAB
     Route: 041
     Dates: start: 20200109
  10. ATEZOLIZUMAB. [Suspect]
     Active Substance: ATEZOLIZUMAB
     Route: 041
     Dates: start: 20200513
  11. ATEZOLIZUMAB. [Suspect]
     Active Substance: ATEZOLIZUMAB
     Route: 041
     Dates: start: 20200624
  12. ETOPOSIDE. [Suspect]
     Active Substance: ETOPOSIDE
     Route: 042
     Dates: start: 20191225
  13. CARBOPLATIN. [Suspect]
     Active Substance: CARBOPLATIN
     Route: 042
     Dates: start: 20200128
  14. MUCOSOL (SOUTH KOREA) [Suspect]
     Active Substance: BROMHEXINE HYDROCHLORIDE
     Indication: PRODUCT USED FOR UNKNOWN INDICATION
     Route: 065
  15. ATEZOLIZUMAB. [Suspect]
     Active Substance: ATEZOLIZUMAB
     Indication: SMALL CELL LUNG CANCER EXTENSIVE STAGE
     Dosage: ON 13/MAY/2020, 03/JUN/2020, 24/JUN/2020, HE RECEIVED SUBSEQUENT DOSE OF ATEZOLIZUMAB.
     Route: 041
     Dates: start: 20191223
  16. ATEZOLIZUMAB. [Suspect]
     Active Substance: ATEZOLIZUMAB
     Route: 041
     Dates: start: 20200128
  17. ETOPOSIDE. [Suspect]
     Active Substance: ETOPOSIDE
     Route: 042
     Dates: start: 20191224
  18. CARBOPLATIN. [Suspect]
     Active Substance: CARBOPLATIN
     Route: 042
     Dates: start: 20200109
  19. ATEZOLIZUMAB. [Suspect]
     Active Substance: ATEZOLIZUMAB
     Route: 041
     Dates: start: 20200603
  20. OSELTAMIVIR [Suspect]
     Active Substance: OSELTAMIVIR
     Indication: PRODUCT USED FOR UNKNOWN INDICATION
     Route: 048
     Dates: start: 20191225
  21. ATEZOLIZUMAB. [Suspect]
     Active Substance: ATEZOLIZUMAB
     Route: 041
     Dates: start: 20200218
  22. CARBOPLATIN. [Suspect]
     Active Substance: CARBOPLATIN
     Route: 042
     Dates: start: 20200218
  23. ETOPOSIDE. [Suspect]
     Active Substance: ETOPOSIDE
     Indication: SMALL CELL LUNG CANCER EXTENSIVE STAGE
     Dosage: ON 24/DEC/2019, PATIENT RECEIVED NEXT 150 MG DOSE OF ETOPOSIDE. ON 25/DEC/2019, PATIENT RECEIVED MOS
     Route: 042
     Dates: start: 20191223
  24. ETOPOSIDE. [Suspect]
     Active Substance: ETOPOSIDE
     Dosage: ON 10/JAN/2020, PATIENT RECEIVED NEXT 150 MG DOSE OF ETOPOSIDE. ON 11/JAN/2020, PATIENT RECEIVED MOS
     Route: 042
     Dates: start: 20200109
  25. ETOPOSIDE. [Suspect]
     Active Substance: ETOPOSIDE
     Dosage: ON 29/JAN/2020, PATIENT RECEIVED NEXT 150 MG DOSE OF ETOPOSIDE. ON 30/JAN/2020, PATIENT RECEIVED MOS
     Route: 042
     Dates: start: 20200128
  26. ETOPOSIDE. [Suspect]
     Active Substance: ETOPOSIDE
     Route: 042
     Dates: start: 20200110
  27. ETOPOSIDE. [Suspect]
     Active Substance: ETOPOSIDE
     Route: 042
     Dates: start: 20200220
  28. CARBOPLATIN. [Suspect]
     Active Substance: CARBOPLATIN
     Indication: SMALL CELL LUNG CANCER EXTENSIVE STAGE
     Dosage: (STRENGTH: 450MG (STRENGTH/1VIALS)
     Route: 042
     Dates: start: 20191223

REACTIONS (10)
  - Dermatitis acneiform [Recovered/Resolved]
  - Bacterial infection [Recovered/Resolved]
  - Pneumonia [Recovered/Resolved]
  - Decreased appetite [Recovered/Resolved]
  - Platelet count decreased [Recovered/Resolved]
  - Influenza [Recovered/Resolved]
  - Productive cough [Recovered/Resolved]
  - Cough [Recovered/Resolved]
  - Neutrophil count decreased [Recovered/Resolved]
  - Anaemia [Recovered/Resolved]

NARRATIVE: CASE EVENT DATE: 20191224
